FAERS Safety Report 18487429 (Version 1)
Quarter: 2020Q4

REPORT INFORMATION
  Report Type: Spontaneous
  Country: TR (occurrence: TR)
  Receive Date: 20201111
  Receipt Date: 20201111
  Transmission Date: 20210114
  Serious: Yes (Other)
  Sender: FDA-Public Use
  Company Number: TR-LUPIN PHARMACEUTICALS INC.-2020-06686

PATIENT
  Age: 10 Year
  Sex: Male

DRUGS (5)
  1. FLUOXETINE [Suspect]
     Active Substance: FLUOXETINE HYDROCHLORIDE
     Indication: DISRUPTIVE MOOD DYSREGULATION DISORDER
     Dosage: 20 MILLIGRAM, QD
     Route: 065
  2. ARIPIPRAZOLE. [Suspect]
     Active Substance: ARIPIPRAZOLE
     Dosage: 5 MILLIGRAM, QD INCREASED AFTER 1 WEEK
     Route: 065
  3. RISPERIDONE. [Suspect]
     Active Substance: RISPERIDONE
     Indication: DISRUPTIVE MOOD DYSREGULATION DISORDER
     Dosage: 1 MILLIGRAM, QD
     Route: 065
  4. ARIPIPRAZOLE. [Suspect]
     Active Substance: ARIPIPRAZOLE
     Indication: DISRUPTIVE MOOD DYSREGULATION DISORDER
     Dosage: 2 MILLIGRAM, QD
     Route: 065
  5. ARIPIPRAZOLE. [Suspect]
     Active Substance: ARIPIPRAZOLE
     Dosage: 2 MILLIGRAM, QD (DECREASED AFTER 4 DAYS)
     Route: 065

REACTIONS (4)
  - Weight increased [Unknown]
  - Tongue injury [Recovered/Resolved]
  - Pain in jaw [Recovered/Resolved]
  - Bruxism [Recovered/Resolved]
